FAERS Safety Report 10744757 (Version 1)
Quarter: 2015Q1

REPORT INFORMATION
  Report Type: Spontaneous
  Country: US (occurrence: None)
  Receive Date: 20150126
  Receipt Date: 20150126
  Transmission Date: 20150721
  Serious: Yes (Other)
  Sender: FDA-Public Use
  Company Number: None

PATIENT
  Age: 55 Year
  Sex: Female

DRUGS (7)
  1. EXTAMAMODAFINIL [Concomitant]
  2. BACLOFEN. [Concomitant]
     Active Substance: BACLOFEN
  3. DRONEDARONE [Concomitant]
     Active Substance: DRONEDARONE
  4. TARZADONE [Concomitant]
  5. ASPIRIN. [Concomitant]
     Active Substance: ASPIRIN
  6. DIAZEPAM. [Concomitant]
     Active Substance: DIAZEPAM
  7. AMPYRA [Suspect]
     Active Substance: DALFAMPRIDINE
     Indication: MULTIPLE SCLEROSIS
     Route: 048
     Dates: start: 201306

REACTIONS (2)
  - Urinary tract infection [None]
  - Multiple sclerosis relapse [None]

NARRATIVE: CASE EVENT DATE: 20141230
